FAERS Safety Report 6617706-6 (Version None)
Quarter: 2010Q1

REPORT INFORMATION
  Report Type: 
  Country: None (occurrence: None)
  Receive Date: 20100308
  Receipt Date: 20100222
  Transmission Date: 20100710
  Serious: Yes (Hospitalization, Other)
  Sender: FDA-Public Use
  Company Number: PHEH2009US16401

PATIENT
  Sex: Female

DRUGS (9)
  1. RECLAST [Suspect]
     Indication: OSTEOPOROSIS
     Dosage: 5 MG, UNK
     Route: 042
     Dates: start: 20090704, end: 20090704
  2. ANTIHYPERTENSIVES [Concomitant]
     Dosage: UNK, UNK
  3. LEVOXYL [Concomitant]
     Dosage: 0.112 UNK, QD
  4. TUMS [Concomitant]
  5. ACIPHEX [Concomitant]
     Dosage: 20 MG, QD
  6. BABY ASPIRIN [Concomitant]
     Dosage: 81 MG, QD
  7. ZOCOR [Concomitant]
     Dosage: 40 MG, QD
  8. HYDROCHLOROTHIAZIDE [Concomitant]
     Dosage: 25 MG, QD
  9. POTASSIUM [Concomitant]
     Dosage: 10 MEQ, BID

REACTIONS (7)
  - ALOPECIA [None]
  - ARTHRALGIA [None]
  - DRY SKIN [None]
  - EYE INFLAMMATION [None]
  - EYE PAIN [None]
  - EYE SWELLING [None]
  - MADAROSIS [None]
